FAERS Safety Report 4552192-1 (Version None)
Quarter: 2004Q4

REPORT INFORMATION
  Report Type: 
  Country: None (occurrence: None)
  Receive Date: 20041217
  Receipt Date: 20040830
  Transmission Date: 20050328
  Serious: No
  Sender: FDA-Public Use
  Company Number: 2004-BP-06238BP(1)

PATIENT
  Age: 65 Year
  Sex: Male

DRUGS (8)
  1. SPIRIVA [Suspect]
     Indication: CHRONIC OBSTRUCTIVE AIRWAYS DISEASE
     Dosage: 18 MCG (18 MCG),  IH
     Route: 055
     Dates: end: 20040512
  2. SPIRIVA [Suspect]
     Indication: CHRONIC OBSTRUCTIVE AIRWAYS DISEASE
     Dosage: 18 MCG (18 MCG),  IH
     Route: 055
     Dates: start: 20040528, end: 20040720
  3. FORADIL [Concomitant]
  4. PREDNISONE [Concomitant]
  5. PEPCID [Concomitant]
  6. LISINOPRIL [Concomitant]
  7. ATROVENT [Concomitant]
  8. OXYGEN (OXYGEN) [Concomitant]

REACTIONS (1)
  - FEELING ABNORMAL [None]
